FAERS Safety Report 12741623 (Version 1)
Quarter: 2016Q3

REPORT INFORMATION
  Report Type: Report from Study
  Country: US (occurrence: US)
  Receive Date: 20160914
  Receipt Date: 20160914
  Transmission Date: 20161109
  Serious: Yes (Hospitalization, Other)
  Sender: FDA-Public Use
  Company Number: US-AMGEN-USASL2016123252

PATIENT
  Age: 76 Year
  Sex: Female
  Weight: 48.73 kg

DRUGS (1)
  1. PROLIA [Suspect]
     Active Substance: DENOSUMAB
     Indication: OSTEOPOROSIS
     Dosage: UNK
     Route: 065

REACTIONS (7)
  - Hemiplegia [Unknown]
  - Anxiety [Unknown]
  - Hospitalisation [Unknown]
  - Menopausal symptoms [Unknown]
  - Neoplasm [Unknown]
  - Memory impairment [Unknown]
  - Treatment noncompliance [Unknown]
